FAERS Safety Report 4408869-1 (Version None)
Quarter: 2004Q3

REPORT INFORMATION
  Report Type: 
  Country: None (occurrence: None)
  Receive Date: 20040727
  Receipt Date: 20040421
  Transmission Date: 20050211
  Serious: Yes (Disabling, Other)
  Sender: FDA-Public Use
  Company Number: GB-GLAXOSMITHKLINE-B0330645A

PATIENT
  Age: 39 Year
  Sex: Male
  Weight: 79.5 kg

DRUGS (3)
  1. SEROXAT [Suspect]
     Indication: DEPRESSION
     Route: 048
  2. PIZOTIFEN [Concomitant]
     Indication: HEADACHE
     Dosage: 1UNIT AT NIGHT
     Route: 065
  3. RIZATRIPTIN [Concomitant]

REACTIONS (9)
  - AGORAPHOBIA [None]
  - AMNESIA [None]
  - DRUG WITHDRAWAL SYNDROME [None]
  - HALLUCINATION, AUDITORY [None]
  - MIGRAINE [None]
  - MOOD SWINGS [None]
  - PARANOIA [None]
  - PSYCHOTIC DISORDER [None]
  - SUICIDAL IDEATION [None]
